FAERS Safety Report 21814312 (Version 1)
Quarter: 2023Q1

REPORT INFORMATION
  Report Type: Report from Study
  Country: US (occurrence: US)
  Receive Date: 20230104
  Receipt Date: 20230104
  Transmission Date: 20230418
  Serious: No
  Sender: FDA-Public Use
  Company Number: US-ABBVIE-4211191

PATIENT
  Sex: Female

DRUGS (5)
  1. SKYRIZI [Suspect]
     Active Substance: RISANKIZUMAB-RZAA
     Indication: Psoriatic arthropathy
     Route: 058
  2. SKYRIZI [Suspect]
     Active Substance: RISANKIZUMAB-RZAA
     Indication: Psoriasis
  3. Pfizer/BioNTech [Concomitant]
     Indication: COVID-19 immunisation
     Dates: start: 20210401, end: 20210401
  4. Pfizer/BioNTech [Concomitant]
     Indication: COVID-19 immunisation
     Dates: start: 20210422, end: 20210422
  5. Pfizer/BioNTech [Concomitant]
     Indication: COVID-19 immunisation
     Dates: start: 20211122, end: 20211122

REACTIONS (1)
  - Headache [Recovered/Resolved]
